FAERS Safety Report 25763894 (Version 1)
Quarter: 2025Q3

REPORT INFORMATION
  Report Type: Spontaneous
  Country: US (occurrence: US)
  Receive Date: 20250905
  Receipt Date: 20250905
  Transmission Date: 20251020
  Serious: No
  Sender: DOMPE FARMACEUTICI
  Company Number: US-FARMAPROD-202411-3862

PATIENT
  Sex: Female

DRUGS (19)
  1. OXERVATE [Suspect]
     Active Substance: CENEGERMIN-BKBJ
     Indication: Neurotrophic keratopathy
     Route: 047
     Dates: start: 20241030
  2. OXERVATE [Suspect]
     Active Substance: CENEGERMIN-BKBJ
  3. REFRESH TEARS [Concomitant]
     Active Substance: CARBOXYMETHYLCELLULOSE SODIUM
  4. TYRVAYA [Concomitant]
     Active Substance: VARENICLINE TARTRATE
  5. VEVYE [Concomitant]
     Active Substance: CYCLOSPORINE
  6. VITAMIN C [Concomitant]
     Active Substance: ASCORBIC ACID
  7. VITAMIN B12 [Concomitant]
     Active Substance: CYANOCOBALAMIN
  8. ASPIRIN [Concomitant]
     Active Substance: ASPIRIN
  9. SODIUM BICARBONATE [Concomitant]
     Active Substance: SODIUM BICARBONATE
  10. ALLOPURINOL [Concomitant]
     Active Substance: ALLOPURINOL
  11. VALSARTAN [Concomitant]
     Active Substance: VALSARTAN
  12. COREG [Concomitant]
     Active Substance: CARVEDILOL
  13. XTAMPZA ER [Concomitant]
     Active Substance: OXYCODONE
  14. MINERALS\VITAMINS [Concomitant]
     Active Substance: MINERALS\VITAMINS
  15. GABAPENTIN [Concomitant]
     Active Substance: GABAPENTIN
  16. LEVOTHYROXINE SODIUM [Concomitant]
     Active Substance: LEVOTHYROXINE SODIUM
  17. NORVASC [Concomitant]
     Active Substance: AMLODIPINE BESYLATE
  18. BENZONATATE [Concomitant]
     Active Substance: BENZONATATE
  19. CODEINE-GUAIFENESIN [Concomitant]
     Active Substance: CODEINE PHOSPHATE\GUAIFENESIN

REACTIONS (4)
  - Eyelid margin crusting [Unknown]
  - Foreign body in eye [Unknown]
  - Nasopharyngitis [Unknown]
  - Cough [Unknown]
